FAERS Safety Report 7135868-1 (Version None)
Quarter: 2010Q4

REPORT INFORMATION
  Report Type: 
  Country: None (occurrence: None)
  Receive Date: 20101118
  Receipt Date: 20101110
  Transmission Date: 20110411
  Serious: Yes (Life-Threatening)
  Sender: FDA-Public Use
  Company Number: 7026928

PATIENT
  Age: 44 Year
  Sex: Female

DRUGS (2)
  1. EUTHYROX 100 MCG(LEVOTHYROXINE SODIUM)(LEVOTHYROXINE SODIUM) [Suspect]
     Indication: POST PROCEDURAL HYPOTHYROIDISM
     Dosage: (100 MCG) ORAL
     Route: 048
     Dates: start: 20090101
  2. PHYTO SOYA (GLYCINE MAX SEED OIL)(GLYCINE MAX SEED OIL) [Suspect]
     Indication: MENOPAUSAL SYMPTOMS
     Dosage: ORAL
     Route: 048
     Dates: start: 20100201

REACTIONS (2)
  - DRUG INTERACTION [None]
  - VENTRICULAR EXTRASYSTOLES [None]
